FAERS Safety Report 9795276 (Version 2)
Quarter: 2014Q1

REPORT INFORMATION
  Report Type: Spontaneous
  Country: US (occurrence: US)
  Receive Date: 20140103
  Receipt Date: 20140324
  Transmission Date: 20141002
  Serious: Yes (Death)
  Sender: FDA-Public Use
  Company Number: US-SHIRE-ALL1-2013-09069

PATIENT
  Sex: Male
  Weight: 31.2 kg

DRUGS (1)
  1. ELAPRASE [Suspect]
     Indication: MUCOPOLYSACCHARIDOSIS II
     Dosage: 0.5 MG/KG, UNKNOWN
     Route: 041

REACTIONS (3)
  - Lung disorder [Fatal]
  - Malnutrition [Fatal]
  - Disease progression [Fatal]
